FAERS Safety Report 4969337-1 (Version None)
Quarter: 2006Q2

REPORT INFORMATION
  Report Type: 
  Country: None (occurrence: None)
  Receive Date: 20060405
  Receipt Date: 20060327
  Transmission Date: 20061013
  Serious: Yes (Disabling, Other)
  Sender: FDA-Public Use
  Company Number: 2006-03-1937

PATIENT
  Age: 58 Year
  Sex: Male

DRUGS (1)
  1. PEG-INTRON [Suspect]
     Indication: HEPATITIS C
     Dates: end: 20050920

REACTIONS (6)
  - ABNORMAL SENSATION IN EYE [None]
  - COGNITIVE DISORDER [None]
  - DEMENTIA [None]
  - EYE PAIN [None]
  - IMPAIRED WORK ABILITY [None]
  - VISUAL DISTURBANCE [None]
